FAERS Safety Report 13040401 (Version 1)
Quarter: 2016Q4

REPORT INFORMATION
  Report Type: Spontaneous
  Country: JP (occurrence: JP)
  Receive Date: 20161219
  Receipt Date: 20161219
  Transmission Date: 20170207
  Serious: Yes (Hospitalization)
  Sender: FDA-Public Use
  Company Number: JP-PFIZER INC-2016585341

PATIENT
  Age: 69 Year
  Sex: Male
  Weight: 59 kg

DRUGS (16)
  1. CAMPTO [Suspect]
     Active Substance: IRINOTECAN
     Dosage: 258 MG, 1X/DAY
     Route: 041
     Dates: start: 20161017, end: 20161017
  2. ELPLAT [Suspect]
     Active Substance: OXALIPLATIN
     Indication: COLON CANCER
     Dosage: 146 MG, 1X/DAY
     Route: 041
     Dates: start: 20160909, end: 20160909
  3. LEVOFOLINATE CALCIUM [Suspect]
     Active Substance: LEVOLEUCOVORIN CALCIUM
     Dosage: 344 MG, 1X/DAY
     Route: 041
     Dates: start: 20161128, end: 20161128
  4. AVASTIN [Suspect]
     Active Substance: BEVACIZUMAB
     Dosage: 295 MG, 1X/DAY
     Route: 041
     Dates: start: 20161017, end: 20161017
  5. AVASTIN [Suspect]
     Active Substance: BEVACIZUMAB
     Dosage: 295 MG, 1X/DAY
     Route: 041
     Dates: start: 20161128, end: 20161128
  6. CAMPTO [Suspect]
     Active Substance: IRINOTECAN
     Indication: COLON CANCER
     Dosage: 258 MG, 1X/DAY
     Route: 041
     Dates: start: 20160909, end: 20160909
  7. LEVOFOLINATE CALCIUM [Suspect]
     Active Substance: LEVOLEUCOVORIN CALCIUM
     Dosage: 344 MG, 1X/DAY
     Route: 041
     Dates: start: 20161017, end: 20161017
  8. 5-FU [Suspect]
     Active Substance: FLUOROURACIL
     Indication: COLON CANCER
     Dosage: 4128 MG, 2X/DAY
     Route: 041
     Dates: start: 20160909, end: 20160909
  9. 5-FU [Suspect]
     Active Substance: FLUOROURACIL
     Dosage: 4128 MG, 2X/DAY
     Route: 041
     Dates: start: 20161128, end: 20161128
  10. CAMPTO [Suspect]
     Active Substance: IRINOTECAN
     Dosage: 258 MG, 1X/DAY
     Route: 041
     Dates: start: 20161128, end: 20161128
  11. LEVOFOLINATE CALCIUM [Suspect]
     Active Substance: LEVOLEUCOVORIN CALCIUM
     Indication: COLON CANCER
     Dosage: 344 MG, 1X/DAY
     Route: 041
     Dates: start: 20160909, end: 20160909
  12. 5-FU [Suspect]
     Active Substance: FLUOROURACIL
     Dosage: 4128 MG, 2X/DAY
     Route: 041
     Dates: start: 20161017, end: 20161017
  13. ELPLAT [Suspect]
     Active Substance: OXALIPLATIN
     Dosage: 146 MG, 1X/DAY
     Route: 041
     Dates: start: 20161017, end: 20161017
  14. ELPLAT [Suspect]
     Active Substance: OXALIPLATIN
     Dosage: 146 MG, 1X/DAY
     Route: 041
     Dates: start: 20161128, end: 20161128
  15. AVASTIN [Suspect]
     Active Substance: BEVACIZUMAB
     Indication: COLON CANCER
     Dosage: 295 MG, 1X/DAY
     Route: 041
     Dates: start: 20160909, end: 20160909
  16. LOXOPROFEN [Concomitant]
     Active Substance: LOXOPROFEN
     Dosage: UNK
     Dates: start: 20161115, end: 20161130

REACTIONS (8)
  - Radial nerve palsy [Recovered/Resolved]
  - White blood cell count decreased [Unknown]
  - Hypertension [Recovering/Resolving]
  - Decreased appetite [Recovered/Resolved]
  - Nausea [Not Recovered/Not Resolved]
  - Calculus bladder [Recovering/Resolving]
  - Abdominal pain upper [Recovered/Resolved]
  - Prostatitis [Recovered/Resolved]

NARRATIVE: CASE EVENT DATE: 20160923
